FAERS Safety Report 9437974 (Version 3)
Quarter: 2014Q3

REPORT INFORMATION
  Report Type: Spontaneous
  Country: US (occurrence: US)
  Receive Date: 20130802
  Receipt Date: 20140723
  Transmission Date: 20150326
  Serious: Yes (Hospitalization, Other)
  Sender: FDA-Public Use
  Company Number: US-009507513-1307USA017156

PATIENT
  Sex: Female
  Weight: 68.93 kg

DRUGS (1)
  1. NUVARING [Suspect]
     Active Substance: ETHINYL ESTRADIOL\ETONOGESTREL
     Indication: CONTRACEPTION
     Dosage: UNK
     Route: 067
     Dates: start: 20100706, end: 20110111

REACTIONS (14)
  - Coagulopathy [Unknown]
  - Pleurisy [Unknown]
  - Upper respiratory tract infection [Unknown]
  - Inappropriate schedule of drug administration [Unknown]
  - Hepatitis B surface antibody positive [Unknown]
  - Atelectasis [Unknown]
  - Dyspnoea [Unknown]
  - Pulmonary infarction [Unknown]
  - Gastric ulcer [Unknown]
  - Maternal exposure before pregnancy [Recovered/Resolved]
  - Pulmonary embolism [Unknown]
  - Rhinitis allergic [Unknown]
  - Wisdom teeth removal [Unknown]
  - Joint swelling [Unknown]

NARRATIVE: CASE EVENT DATE: 20100706
